FAERS Safety Report 6313427-8 (Version None)
Quarter: 2009Q3

REPORT INFORMATION
  Report Type: 
  Country: None (occurrence: None)
  Receive Date: 20090814
  Receipt Date: 20090803
  Transmission Date: 20100115
  Serious: No
  Sender: FDA-Public Use
  Company Number: FABR-1000934

PATIENT
  Age: 23 Year
  Sex: Male

DRUGS (6)
  1. FABRAZYME [Suspect]
     Indication: FABRY'S DISEASE
     Dosage: 50 MG, Q2W, INTRAVENOUS
     Route: 042
     Dates: start: 20050207
  2. GABAPENTIN [Concomitant]
  3. CALCIUM CARBONATE (CALCIUM CARBONATE) [Concomitant]
  4. VITAMIN D [Concomitant]
  5. ASPIRIN (SALICYLAMIDE) [Concomitant]
  6. LOSARTAN [Concomitant]

REACTIONS (7)
  - BRADYCARDIA [None]
  - CARDIAC HYPERTROPHY [None]
  - ELECTROCARDIOGRAM REPOLARISATION ABNORMALITY [None]
  - HAEMODIALYSIS [None]
  - HEMIPARESIS [None]
  - RENAL FAILURE CHRONIC [None]
  - THALAMIC INFARCTION [None]
